FAERS Safety Report 4490790-4 (Version None)
Quarter: 2004Q4

REPORT INFORMATION
  Report Type: 
  Country: None (occurrence: None)
  Receive Date: 20041027
  Receipt Date: 20041012
  Transmission Date: 20050328
  Serious: Yes (Hospitalization)
  Sender: FDA-Public Use
  Company Number: 235277K04USA

PATIENT
  Age: 36 Year
  Sex: Female

DRUGS (13)
  1. REBIF [Suspect]
     Indication: MULTIPLE SCLEROSIS
     Dosage: 44 MCG, 3 IN 1 WEEKS,
     Dates: start: 20020718
  2. PREDNISONE [Suspect]
     Dosage: 10 MG, 1 IN 1 DAYS
  3. LISINOPRIL [Concomitant]
  4. ASPIRIN (ACETYLSALICYIC ACID) [Concomitant]
  5. MAGNESIUM CHLORIDE (MAGNESIUM CHLORIDE ANHYDROUS) [Concomitant]
  6. ZANTAC [Concomitant]
  7. CLONAZEPAM [Concomitant]
  8. SENOKOT [Concomitant]
  9. VITAMIN C (ASCORBIC ACID) [Concomitant]
  10. TYLENOL [Concomitant]
  11. CALCIUM PLUS VITAMIN D (CALCIUM WITH VITAMIN D) [Concomitant]
  12. STERIOD (CORTICOSTEROID NOS) [Concomitant]
  13. LEVAQUIN [Concomitant]

REACTIONS (8)
  - ALBUMIN URINE PRESENT [None]
  - DIABETES MELLITUS [None]
  - DIABETIC KETOACIDOSIS [None]
  - EXERCISE LACK OF [None]
  - INFECTION [None]
  - MALAISE [None]
  - OSTEOPENIA [None]
  - VITAMIN D DEFICIENCY [None]
